FAERS Safety Report 9626999 (Version 1)
Quarter: 2013Q4

REPORT INFORMATION
  Report Type: Spontaneous
  Country: US (occurrence: US)
  Receive Date: 20131016
  Receipt Date: 20131016
  Transmission Date: 20140711
  Serious: No
  Sender: FDA-Public Use
  Company Number: US-PURDUE-USA-2013-0099930

PATIENT
  Sex: Female

DRUGS (4)
  1. OXYCODONE HCL IR CAPSULES [Suspect]
     Indication: SPINAL COLUMN STENOSIS
     Dosage: 5 MG, DAILY
     Route: 048
     Dates: start: 201301
  2. OXYCODONE HCL IR CAPSULES [Suspect]
     Indication: BREAKTHROUGH PAIN
  3. OXYCONTIN (NDA 22-272) [Concomitant]
     Indication: SPINAL COLUMN STENOSIS
     Dosage: 15 MG, BID
     Route: 048
     Dates: start: 201201
  4. OXYCONTIN (NDA 22-272) [Concomitant]
     Indication: SCOLIOSIS

REACTIONS (2)
  - Tremor [Not Recovered/Not Resolved]
  - Nausea [Not Recovered/Not Resolved]
